FAERS Safety Report 6855562-1 (Version None)
Quarter: 2010Q3

REPORT INFORMATION
  Report Type: 
  Country: None (occurrence: None)
  Receive Date: 20100716
  Receipt Date: 20100716
  Transmission Date: 20110219
  Serious: Yes (Other)
  Sender: FDA-Public Use
  Company Number: None

PATIENT
  Age: 64 Year
  Sex: Female
  Weight: 88.905 kg

DRUGS (2)
  1. CLARITHROMYCIN [Suspect]
     Indication: COUGH
     Dosage: 28 TABS BID ORAL
     Route: 048
     Dates: start: 20100529, end: 20100602
  2. CLARITHROMYCIN [Suspect]
     Indication: NASOPHARYNGITIS
     Dosage: 28 TABS BID ORAL
     Route: 048
     Dates: start: 20100529, end: 20100602

REACTIONS (1)
  - URTICARIA [None]
